FAERS Safety Report 8836559 (Version 2)
Quarter: 2013Q1

REPORT INFORMATION
  Report Type: Spontaneous
  Country: US (occurrence: None)
  Receive Date: 20121009
  Receipt Date: 20121127
  Transmission Date: 20140127
  Serious: Yes (Hospitalization)
  Sender: FDA-Public Use
  Company Number: ACO_32223_2012

PATIENT
  Age: 83 Year
  Sex: Female
  Weight: 67.1 kg

DRUGS (2)
  1. AMPYRA [Suspect]
     Indication: GAIT DISTURBANCE
     Route: 048
     Dates: start: 2012, end: 201208
  2. COPAXONE (GLATIRAMER ACETATE) [Concomitant]

REACTIONS (5)
  - Joint dislocation [None]
  - Fall [None]
  - Musculoskeletal pain [None]
  - Dizziness [None]
  - Musculoskeletal pain [None]
